FAERS Safety Report 17971454 (Version 5)
Quarter: 2021Q2

REPORT INFORMATION
  Report Type: Spontaneous
  Country: US (occurrence: US)
  Receive Date: 20200702
  Receipt Date: 20210616
  Transmission Date: 20210717
  Serious: Yes (Other)
  Sender: FDA-Public Use
  Company Number: US-GILEAD-2020-0477831

PATIENT
  Age: 32 Year
  Sex: Male
  Weight: 84.36 kg

DRUGS (42)
  1. PANTOPRAZOLE [Concomitant]
     Active Substance: PANTOPRAZOLE
  2. PENICILLIN NOS [Concomitant]
     Active Substance: PENICILLIN
  3. PREDNISONE. [Concomitant]
     Active Substance: PREDNISONE
  4. CLONAZEPAM. [Concomitant]
     Active Substance: CLONAZEPAM
  5. ACETAMINOPHEN. [Concomitant]
     Active Substance: ACETAMINOPHEN
  6. LEVEMIR [Concomitant]
     Active Substance: INSULIN DETEMIR
  7. PROCTOFOAM HC [Concomitant]
     Active Substance: HYDROCORTISONE ACETATE\PRAMOXINE HYDROCHLORIDE
  8. TAMULOSIN [Concomitant]
     Active Substance: TAMSULOSIN
  9. SUPRAX [Concomitant]
     Active Substance: CEFIXIME
  10. PROVENTIL [Concomitant]
     Active Substance: ALBUTEROL
  11. EMTRIVA [Concomitant]
     Active Substance: EMTRICITABINE
  12. ISENTRESS [Concomitant]
     Active Substance: RALTEGRAVIR POTASSIUM
  13. NEXIUM I.V. [Concomitant]
     Active Substance: ESOMEPRAZOLE SODIUM
  14. XANAX [Concomitant]
     Active Substance: ALPRAZOLAM
  15. TAMIFLU [Concomitant]
     Active Substance: OSELTAMIVIR PHOSPHATE
  16. ONDANSETRON [Concomitant]
     Active Substance: ONDANSETRON
  17. TRUVADA [Suspect]
     Active Substance: EMTRICITABINE\TENOFOVIR DISOPROXIL FUMARATE
     Dosage: UNK
     Route: 048
     Dates: start: 20110324, end: 20140716
  18. ATRIPLA [Suspect]
     Active Substance: EFAVIRENZ\EMTRICITABINE\TENOFOVIR DISOPROXIL FUMARATE
     Indication: HIV INFECTION
     Dosage: UNK
     Route: 048
     Dates: start: 20091023, end: 20110621
  19. ATORVASTATIN [Concomitant]
     Active Substance: ATORVASTATIN
  20. PRAVASTATIN. [Concomitant]
     Active Substance: PRAVASTATIN
  21. ZIAGEN [Concomitant]
     Active Substance: ABACAVIR SULFATE
  22. HUMALOG [Concomitant]
     Active Substance: INSULIN LISPRO
  23. GENTAMICIN. [Concomitant]
     Active Substance: GENTAMICIN
  24. ROPINIROLE. [Concomitant]
     Active Substance: ROPINIROLE
  25. PROCHLORPERAZINE. [Concomitant]
     Active Substance: PROCHLORPERAZINE
  26. LAMIVUDINE. [Concomitant]
     Active Substance: LAMIVUDINE
  27. TRUVADA [Suspect]
     Active Substance: EMTRICITABINE\TENOFOVIR DISOPROXIL FUMARATE
     Indication: HIV INFECTION
     Dosage: UNK
     Route: 048
     Dates: start: 20110621, end: 20140716
  28. ESOMEPRAZOLE. [Concomitant]
     Active Substance: ESOMEPRAZOLE MAGNESIUM
  29. TRIUMEQ [Concomitant]
     Active Substance: ABACAVIR SULFATE\DOLUTEGRAVIR SODIUM\LAMIVUDINE
  30. DOCQLACE [Concomitant]
     Active Substance: DOCUSATE SODIUM
  31. VENTOLINE [SALBUTAMOL SULFATE] [Concomitant]
     Active Substance: ALBUTEROL SULFATE
  32. TIVICAY [Concomitant]
     Active Substance: DOLUTEGRAVIR SODIUM
  33. METOPROLOL. [Concomitant]
     Active Substance: METOPROLOL
  34. ZOLPIDEM [Concomitant]
     Active Substance: ZOLPIDEM TARTRATE
  35. ACYCLOVIR [ACICLOVIR] [Concomitant]
     Active Substance: ACYCLOVIR
  36. NOVOLOG [Concomitant]
     Active Substance: INSULIN ASPART
  37. CEPHALEXIN [CEFALEXIN] [Concomitant]
     Active Substance: CEPHALEXIN
  38. SULFAMETH/TRIMETH [Concomitant]
     Active Substance: SULFAMETHOXAZOLE\TRIMETHOPRIM
  39. METRONIDAZOLE. [Concomitant]
     Active Substance: METRONIDAZOLE
  40. DOXYCYCLINE. [Concomitant]
     Active Substance: DOXYCYCLINE
  41. TRIAMCINOLONE [TRIAMCINOLONE ACETONIDE] [Concomitant]
  42. LEVOFLOXACIN. [Concomitant]
     Active Substance: LEVOFLOXACIN

REACTIONS (12)
  - Renal failure [Not Recovered/Not Resolved]
  - Chronic kidney disease [Not Recovered/Not Resolved]
  - Emotional distress [Not Recovered/Not Resolved]
  - Anxiety [Not Recovered/Not Resolved]
  - Bone loss [Not Recovered/Not Resolved]
  - Tooth loss [Not Recovered/Not Resolved]
  - Depression [Not Recovered/Not Resolved]
  - Osteonecrosis [Unknown]
  - Poor dental condition [Unknown]
  - Bone density decreased [Unknown]
  - Fracture [Unknown]
  - Pain [Not Recovered/Not Resolved]

NARRATIVE: CASE EVENT DATE: 201207
